FAERS Safety Report 18887979 (Version 11)
Quarter: 2022Q2

REPORT INFORMATION
  Report Type: Report from Study
  Country: US (occurrence: US)
  Receive Date: 20210212
  Receipt Date: 20220407
  Transmission Date: 20220720
  Serious: Yes (Hospitalization, Other)
  Sender: FDA-Public Use
  Company Number: NVSC2021US029326

PATIENT
  Age: 2 Year
  Sex: Female
  Weight: 9 kg

DRUGS (7)
  1. ZOLGENSMA [Suspect]
     Active Substance: ONASEMNOGENE ABEPARVOVEC-XIOI
     Indication: Spinal muscular atrophy
     Dosage: 1.1X10E14 VG/KG, ONCE/SINGLE
     Route: 042
     Dates: start: 20210128, end: 20210128
  2. PREDNISONE [Concomitant]
     Active Substance: PREDNISONE
     Indication: Product used for unknown indication
     Dosage: 1 MG/KG
     Route: 065
     Dates: start: 20210126, end: 20210201
  3. PREDNISONE [Concomitant]
     Active Substance: PREDNISONE
     Dosage: 10 MG
     Route: 065
     Dates: start: 20210130, end: 20210224
  4. PREDNISONE [Concomitant]
     Active Substance: PREDNISONE
     Dosage: 7.5 MG
     Route: 065
     Dates: start: 20210224, end: 20210310
  5. PREDNISONE [Concomitant]
     Active Substance: PREDNISONE
     Dosage: 10 MG
     Route: 065
     Dates: start: 20210310, end: 20210407
  6. PREDNISONE [Concomitant]
     Active Substance: PREDNISONE
     Dosage: 7.5 MG
     Route: 065
     Dates: start: 20210407, end: 20210505
  7. PREDNISONE [Concomitant]
     Active Substance: PREDNISONE
     Dosage: 4 MG/KG
     Route: 065
     Dates: start: 20210505

REACTIONS (10)
  - Pyrexia [Recovered/Resolved]
  - Thrombocytopenia [Recovered/Resolved]
  - Alanine aminotransferase increased [Recovered/Resolved]
  - Aspartate aminotransferase increased [Recovered/Resolved]
  - Rhinovirus infection [Recovered/Resolved]
  - Vomiting [Recovered/Resolved]
  - Human bocavirus infection [Recovered/Resolved]
  - Scoliosis [Not Recovered/Not Resolved]
  - Drug eruption [Recovered/Resolved]
  - Oral candidiasis [Recovered/Resolved]

NARRATIVE: CASE EVENT DATE: 20210129
